FAERS Safety Report 9676438 (Version 2)
Quarter: 2013Q4

REPORT INFORMATION
  Report Type: Spontaneous
  Country: US (occurrence: US)
  Receive Date: 20131107
  Receipt Date: 20131113
  Transmission Date: 20140711
  Serious: Yes (Other)
  Sender: FDA-Public Use
  Company Number: CHPA2013US016605

PATIENT
  Sex: Female

DRUGS (3)
  1. VOLTAREN GEL [Suspect]
     Indication: MENISCUS INJURY
     Dosage: UNK, UNK
     Route: 061
  2. VOLTAREN GEL [Suspect]
     Indication: PAIN
  3. VOLTAREN GEL [Suspect]
     Indication: OFF LABEL USE

REACTIONS (4)
  - Intervertebral disc protrusion [Not Recovered/Not Resolved]
  - Drug ineffective for unapproved indication [Unknown]
  - Drug administered at inappropriate site [Unknown]
  - Therapeutic response unexpected [Unknown]
